FAERS Safety Report 16956139 (Version 1)
Quarter: 2019Q4

REPORT INFORMATION
  Report Type: Spontaneous
  Country: CA (occurrence: CA)
  Receive Date: 20191024
  Receipt Date: 20191024
  Transmission Date: 20200122
  Serious: Yes (Other)
  Sender: FDA-Public Use
  Company Number: CA-PFIZER INC-2018034122

PATIENT
  Age: 59 Year
  Sex: Female

DRUGS (5)
  1. XELJANZ [Suspect]
     Active Substance: TOFACITINIB CITRATE
     Dosage: 5 MG, BID
     Route: 048
     Dates: start: 201906
  2. LEUCOVORIN /00566702/ [Concomitant]
     Active Substance: LEUCOVORIN
     Dosage: UNK
     Dates: end: 20181201
  3. PLAQUENIL [Concomitant]
     Active Substance: HYDROXYCHLOROQUINE SULFATE
     Indication: RHEUMATOID ARTHRITIS
     Dosage: 200 MG, 2X/DAY
  4. METHOTREXATE. [Concomitant]
     Active Substance: METHOTREXATE
     Indication: RHEUMATOID ARTHRITIS
     Dosage: 7.5 MG, WEEKLY
     Route: 058
     Dates: end: 20181201
  5. XELJANZ [Suspect]
     Active Substance: TOFACITINIB CITRATE
     Indication: RHEUMATOID ARTHRITIS
     Dosage: 5 MG, BID
     Route: 048
     Dates: start: 20180115, end: 20181201

REACTIONS (11)
  - Scoliosis [Unknown]
  - Oedema peripheral [Recovered/Resolved]
  - Therapeutic product effect incomplete [Unknown]
  - Gastric haemorrhage [Unknown]
  - Back pain [Not Recovered/Not Resolved]
  - Weight increased [Unknown]
  - Neuralgia [Unknown]
  - Impaired quality of life [Unknown]
  - Blood iron abnormal [Unknown]
  - Condition aggravated [Not Recovered/Not Resolved]
  - Mobility decreased [Unknown]
